FAERS Safety Report 12221593 (Version 3)
Quarter: 2016Q3

REPORT INFORMATION
  Report Type: Other
  Country: IT (occurrence: IT)
  Receive Date: 20160330
  Receipt Date: 20160711
  Transmission Date: 20161109
  Serious: Yes (Hospitalization)
  Sender: FDA-Public Use
  Company Number: IT-ARIAD-2016IT006276

PATIENT
  Age: 62 Year
  Sex: Male
  Weight: 100 kg

DRUGS (3)
  1. ONCO CARBIDE [Concomitant]
     Active Substance: HYDROXYUREA
     Indication: CHRONIC MYELOID LEUKAEMIA
     Dosage: 500 MG, 1UNIT DOSE
     Route: 048
     Dates: start: 20160304, end: 20160321
  2. ICLUSIG [Suspect]
     Active Substance: PONATINIB
     Indication: CHRONIC MYELOID LEUKAEMIA
     Dosage: 30 MG, QD
     Route: 048
     Dates: start: 20160216, end: 20160321
  3. ICLUSIG [Suspect]
     Active Substance: PONATINIB
     Dosage: UNK
     Route: 048
     Dates: start: 20160422

REACTIONS (3)
  - Skin exfoliation [Not Recovered/Not Resolved]
  - Troponin T increased [Not Recovered/Not Resolved]
  - Abdominal pain [Not Recovered/Not Resolved]

NARRATIVE: CASE EVENT DATE: 20160318
